FAERS Safety Report 7911710-3 (Version None)
Quarter: 2011Q4

REPORT INFORMATION
  Report Type: 
  Country: None (occurrence: None)
  Receive Date: 20111114
  Receipt Date: 20111104
  Transmission Date: 20120403
  Serious: Yes (Hospitalization, Other)
  Sender: FDA-Public Use
  Company Number: US-JNJFOC-20110203696

PATIENT
  Sex: Male
  Weight: 79.38 kg

DRUGS (12)
  1. FENOFIBRATE [Concomitant]
     Indication: BLOOD CHOLESTEROL INCREASED
     Route: 048
     Dates: start: 20010101
  2. IMURAN [Concomitant]
     Indication: CROHN'S DISEASE
     Route: 048
     Dates: start: 20100901
  3. LISINOPRIL [Concomitant]
     Indication: HYPERTENSION
     Route: 048
  4. NEXIUM [Concomitant]
     Indication: GASTROOESOPHAGEAL REFLUX DISEASE
     Route: 048
     Dates: start: 20010101
  5. ACTOS [Concomitant]
     Indication: TYPE 2 DIABETES MELLITUS
     Route: 048
     Dates: start: 20060101
  6. SPIRIVA [Concomitant]
     Indication: ASTHMA
     Dosage: 1 PUFF DAILY
     Route: 055
  7. REMICADE [Suspect]
     Indication: CROHN'S DISEASE
     Route: 042
     Dates: start: 20110127
  8. AMARYL [Concomitant]
     Indication: TYPE 2 DIABETES MELLITUS
     Route: 048
     Dates: start: 20100101
  9. LIPITOR [Concomitant]
     Indication: BLOOD CHOLESTEROL INCREASED
     Route: 048
     Dates: start: 20010101
  10. REMICADE [Suspect]
     Route: 042
  11. ADVAIR DISKUS 100/50 [Concomitant]
     Indication: ASTHMA
     Dosage: 250/50 MG, 2 PUFFS DAILY
     Route: 055
     Dates: start: 20060101
  12. ALBUTEROL [Concomitant]
     Indication: ASTHMA
     Dosage: AS NEEDED
     Route: 055
     Dates: start: 20060101

REACTIONS (13)
  - HAEMOGLOBIN DECREASED [None]
  - DEHYDRATION [None]
  - OEDEMA PERIPHERAL [None]
  - DIARRHOEA [None]
  - FLUSHING [None]
  - HYPOTENSION [None]
  - BACK PAIN [None]
  - ARTHRALGIA [None]
  - INFUSION RELATED REACTION [None]
  - BLOOD PRESSURE INCREASED [None]
  - CHILLS [None]
  - RECTAL HAEMORRHAGE [None]
  - LOSS OF CONSCIOUSNESS [None]
